FAERS Safety Report 20517019 (Version 1)
Quarter: 2022Q1

REPORT INFORMATION
  Report Type: Spontaneous
  Country: CN (occurrence: CN)
  Receive Date: 20220225
  Receipt Date: 20220225
  Transmission Date: 20220423
  Serious: Yes (Other)
  Sender: FDA-Public Use
  Company Number: CN-QILU PHARMACEUTICAL (HAINAN) CO., LTD.-QLH-000042-2022

PATIENT
  Age: 65 Year
  Sex: Male

DRUGS (10)
  1. OXALIPLATIN [Suspect]
     Active Substance: OXALIPLATIN
     Indication: Natural killer-cell lymphoblastic lymphoma
     Dosage: UNK, SIX CYCLES OF P-GEMOX CHEMOTHERAPY AS FIRST-LINE TREATMENT
     Route: 065
  2. OXALIPLATIN [Suspect]
     Active Substance: OXALIPLATIN
     Indication: T-cell lymphoma
     Dosage: UNK, 1 YEAR LATER, RECEIVED THE SAME DOSE OF P-GEMOX COMBINED WITH SINTILIMAB AS SECOND-LINE TREATME
     Route: 065
     Dates: start: 20200807
  3. SINTILIMAB [Suspect]
     Active Substance: SINTILIMAB
     Indication: Natural killer-cell lymphoblastic lymphoma
     Dosage: 200 MILLIGRAM, EVERY 3 WEEKS
     Route: 042
     Dates: start: 20200807
  4. SINTILIMAB [Suspect]
     Active Substance: SINTILIMAB
     Indication: T-cell lymphoma
     Dosage: 200 MILLIGRAM
     Route: 042
     Dates: start: 20200818
  5. SINTILIMAB [Suspect]
     Active Substance: SINTILIMAB
     Dosage: 200 MILLIGRAM
     Route: 042
     Dates: start: 20200919
  6. SINTILIMAB [Suspect]
     Active Substance: SINTILIMAB
     Dosage: 200 MILLIGRAM
     Route: 042
     Dates: start: 20201012
  7. PEGASPARGASE [Suspect]
     Active Substance: PEGASPARGASE
     Indication: Natural killer-cell lymphoblastic lymphoma
     Dosage: UNK, SIX CYCLES
     Route: 065
  8. PEGASPARGASE [Suspect]
     Active Substance: PEGASPARGASE
     Indication: T-cell lymphoma
     Dosage: UNK, 1 YEAR LATER, RECEIVED THE SAME DOSE OF P-GEMOX COMBINED WITH SINTILIMAB
     Route: 065
     Dates: start: 20200807
  9. GEMCITABINE [Suspect]
     Active Substance: GEMCITABINE
     Indication: Natural killer-cell lymphoblastic lymphoma
     Dosage: UNK, SIX CYCLES
     Route: 065
  10. GEMCITABINE [Suspect]
     Active Substance: GEMCITABINE
     Indication: T-cell lymphoma
     Dosage: UNK, 1 YEAR LATER, RECEIVED THE SAME DOSE OF P-GEMOX COMBINED WITH SINTILIMAB
     Route: 065
     Dates: start: 20200807

REACTIONS (2)
  - Toxic epidermal necrolysis [Recovered/Resolved]
  - Product use in unapproved indication [Unknown]

NARRATIVE: CASE EVENT DATE: 20201023
